FAERS Safety Report 6914829-9 (Version None)
Quarter: 2010Q3

REPORT INFORMATION
  Report Type: 
  Country: None (occurrence: None)
  Receive Date: 20100809
  Receipt Date: 20100803
  Transmission Date: 20110219
  Serious: Yes (Other)
  Sender: FDA-Public Use
  Company Number: GXBR2010US01294

PATIENT
  Sex: Female
  Weight: 74.83 kg

DRUGS (3)
  1. DICLOFENAC SODIUM [Suspect]
     Indication: OSTEOARTHRITIS
     Dosage: 75 MG, BID
     Route: 048
     Dates: start: 20090601, end: 20100710
  2. WELLBUTRIN [Concomitant]
     Dosage: UNK
  3. TRAZODONE [Concomitant]
     Indication: INSOMNIA
     Dosage: 100 MG, UNK

REACTIONS (4)
  - ATRIAL FIBRILLATION [None]
  - CARDIOVERSION [None]
  - SUPRAVENTRICULAR TACHYCARDIA [None]
  - TACHYCARDIA [None]
